FAERS Safety Report 6793579-6 (Version None)
Quarter: 2010Q2

REPORT INFORMATION
  Report Type: 
  Country: None (occurrence: None)
  Receive Date: 20100624
  Receipt Date: 20081209
  Transmission Date: 20101027
  Serious: No
  Sender: FDA-Public Use
  Company Number: US-PFIZER INC-2008151516

PATIENT
  Sex: Male
  Weight: 35.198 kg

DRUGS (3)
  1. SOMAVERT [Suspect]
     Indication: GROWTH HORMONE-PRODUCING PITUITARY TUMOUR
     Route: 051
     Dates: start: 20081125, end: 20081208
  2. CABERGOLINE [Concomitant]
  3. LEVOTHYROXINE SODIUM [Concomitant]

REACTIONS (1)
  - INJECTION SITE REACTION [None]
